FAERS Safety Report 5299849-5 (Version None)
Quarter: 2007Q2

REPORT INFORMATION
  Report Type: 
  Country: None (occurrence: None)
  Receive Date: 20070417
  Receipt Date: 20070406
  Transmission Date: 20071010
  Serious: Yes (Other)
  Sender: FDA-Public Use
  Company Number: US-PFIZER INC-2007028438

PATIENT
  Sex: Male
  Weight: 81.6 kg

DRUGS (12)
  1. LYRICA [Suspect]
     Indication: NEUROPATHY
     Dates: start: 20060422, end: 20060425
  2. LYRICA [Suspect]
     Indication: PERIPHERAL VASCULAR DISORDER
  3. LYRICA [Suspect]
     Indication: PAIN
  4. LYRICA [Suspect]
     Indication: PAIN IN EXTREMITY
  5. AMIODARONE HCL [Concomitant]
  6. COREG [Concomitant]
  7. IRON [Concomitant]
  8. COUMADIN [Concomitant]
  9. VYTORIN [Concomitant]
  10. ACETYLSALICYLIC ACID SRT [Concomitant]
  11. AMARYL [Concomitant]
  12. VITAMIN CAP [Concomitant]

REACTIONS (2)
  - FEELING DRUNK [None]
  - SYNCOPE [None]
